FAERS Safety Report 9570720 (Version 2)
Quarter: 2013Q4

REPORT INFORMATION
  Report Type: Spontaneous
  Country: ES (occurrence: ES)
  Receive Date: 20131001
  Receipt Date: 20131007
  Transmission Date: 20140711
  Serious: Yes (Other)
  Sender: FDA-Public Use
  Company Number: ES-BRISTOL-MYERS SQUIBB COMPANY-19432582

PATIENT
  Sex: Male

DRUGS (1)
  1. REYATAZ [Suspect]

REACTIONS (1)
  - Lung neoplasm malignant [Unknown]
